FAERS Safety Report 12974583 (Version 2)
Quarter: 2016Q4

REPORT INFORMATION
  Report Type: Report from Study
  Country: US (occurrence: US)
  Receive Date: 20161125
  Receipt Date: 20161207
  Transmission Date: 20170207
  Serious: Yes (Hospitalization, Other)
  Sender: FDA-Public Use
  Company Number: US-GILEAD-2016-0245273

PATIENT
  Age: 56 Year
  Sex: Male

DRUGS (15)
  1. AMBRISENTAN [Suspect]
     Active Substance: AMBRISENTAN
     Indication: END STAGE RENAL DISEASE
     Dosage: 5 MG, UNK
     Route: 065
  2. ATIVAN [Concomitant]
     Active Substance: LORAZEPAM
  3. LYRICA [Concomitant]
     Active Substance: PREGABALIN
  4. TRAMADOL. [Concomitant]
     Active Substance: TRAMADOL
  5. SEVELAMER [Concomitant]
     Active Substance: SEVELAMER
  6. AMBRISENTAN [Suspect]
     Active Substance: AMBRISENTAN
     Indication: PULMONARY HYPERTENSION
     Dosage: 5 MG, UNK
     Route: 065
  7. AMBRISENTAN [Suspect]
     Active Substance: AMBRISENTAN
     Indication: SLEEP APNOEA SYNDROME
  8. AMBRISENTAN [Suspect]
     Active Substance: AMBRISENTAN
     Indication: ATRIAL SEPTAL DEFECT
  9. SENSIPAR [Concomitant]
     Active Substance: CINACALCET HYDROCHLORIDE
  10. AMBRISENTAN [Suspect]
     Active Substance: AMBRISENTAN
     Indication: ATRIAL FIBRILLATION
  11. SILDENAFIL. [Concomitant]
     Active Substance: SILDENAFIL
  12. AMBRISENTAN [Suspect]
     Active Substance: AMBRISENTAN
     Indication: CORONARY ARTERY DISEASE
  13. CARBAMAZEPINE. [Concomitant]
     Active Substance: CARBAMAZEPINE
  14. VITAMIN D3 [Concomitant]
     Active Substance: CHOLECALCIFEROL
  15. INSULIN [Concomitant]
     Active Substance: INSULIN NOS

REACTIONS (2)
  - Sepsis [Recovered/Resolved]
  - Appendicitis [Recovered/Resolved]
